FAERS Safety Report 7333357-2 (Version None)
Quarter: 2011Q1

REPORT INFORMATION
  Report Type: 
  Country: None (occurrence: None)
  Receive Date: 20110304
  Receipt Date: 20110218
  Transmission Date: 20110831
  Serious: Yes (Hospitalization, Other)
  Sender: FDA-Public Use
  Company Number: NL-CELGENEUS-114-21880-11022425

PATIENT
  Sex: Male
  Weight: 77 kg

DRUGS (8)
  1. REVLIMID [Suspect]
     Indication: MYELOFIBROSIS
     Dosage: 5 MILLIGRAM
     Route: 048
     Dates: start: 20110120, end: 20110210
  2. ACENOCOUMAROL [Concomitant]
     Route: 065
     Dates: start: 20030101
  3. PREDNISONE [Concomitant]
     Indication: MYELOFIBROSIS
     Dosage: 10 MILLIGRAM
     Route: 065
     Dates: start: 20101202
  4. TRAMADOL HCL [Concomitant]
     Indication: PAIN
     Dosage: 150 MILLIGRAM
     Route: 065
     Dates: start: 20101104
  5. LOPERAMIDE [Concomitant]
     Dosage: 4 MILLIGRAM
     Route: 065
     Dates: start: 20091202
  6. CITALOPRAM [Concomitant]
     Indication: DEPRESSION
     Dosage: 40 MILLIGRAM
     Route: 065
     Dates: start: 20100225
  7. OMEPRAZOLE [Concomitant]
     Dosage: 20 MILLIGRAM
     Route: 065
     Dates: start: 20100225
  8. PERINDOPRIL [Concomitant]
     Dosage: 40 MILLIGRAM
     Route: 065
     Dates: start: 20100525

REACTIONS (3)
  - ASCITES [None]
  - PROTEINURIA [None]
  - DERMATITIS ALLERGIC [None]
